FAERS Safety Report 4777060-1 (Version None)
Quarter: 2005Q3

REPORT INFORMATION
  Report Type: 
  Country: None (occurrence: None)
  Receive Date: 20050921
  Receipt Date: 20050909
  Transmission Date: 20060218
  Serious: Yes (Death)
  Sender: FDA-Public Use
  Company Number: 2005BI016925

PATIENT
  Age: 49 Year
  Sex: Female

DRUGS (3)
  1. AVONEX [Suspect]
     Indication: MULTIPLE SCLEROSIS
     Dosage: IM
     Route: 030
     Dates: end: 19970101
  2. PLASMA [Concomitant]
  3. BETASERON [Concomitant]

REACTIONS (4)
  - BREAST CANCER METASTATIC [None]
  - HEADACHE [None]
  - HYPOTONIA [None]
  - METASTASES TO CENTRAL NERVOUS SYSTEM [None]
